FAERS Safety Report 7426135-7 (Version None)
Quarter: 2011Q2

REPORT INFORMATION
  Report Type: 
  Country: None (occurrence: None)
  Receive Date: 20110420
  Receipt Date: 20110405
  Transmission Date: 20111010
  Serious: Yes (Hospitalization)
  Sender: FDA-Public Use
  Company Number: US-CELGENEUS-163-20785-11040540

PATIENT
  Sex: Female

DRUGS (5)
  1. THALOMID [Suspect]
     Dosage: 50MG-200MG
     Route: 048
     Dates: start: 20050401
  2. THALOMID [Suspect]
     Dosage: 50MG-100MG
     Route: 048
     Dates: start: 20060701
  3. THALOMID [Suspect]
     Dosage: 100MG-200MG
     Route: 048
     Dates: start: 20080901
  4. THALOMID [Suspect]
     Indication: MULTIPLE MYELOMA
     Dosage: 200 MILLIGRAM
     Route: 048
     Dates: start: 20041201
  5. THALOMID [Suspect]
     Dosage: 200 MILLIGRAM
     Route: 048
     Dates: start: 20110101

REACTIONS (1)
  - PANCREATIC DISORDER [None]
